FAERS Safety Report 25978015 (Version 1)
Quarter: 2025Q4

REPORT INFORMATION
  Report Type: Spontaneous
  Country: US (occurrence: US)
  Receive Date: 20251030
  Receipt Date: 20251030
  Transmission Date: 20260117
  Serious: Yes (Other)
  Sender: COOPERSURGICAL
  Company Number: US-COOPERSURGICAL, INC.-2025CPS007557

PATIENT
  Sex: Female
  Weight: 58.957 kg

DRUGS (1)
  1. PARAGARD T 380A [Suspect]
     Active Substance: COPPER
     Indication: Contraception
     Dosage: UNK
     Route: 015
     Dates: start: 20130620, end: 20190806

REACTIONS (17)
  - Surgery [Recovered/Resolved]
  - Ovarian cyst [Recovered/Resolved]
  - Device breakage [Recovered/Resolved]
  - Foreign body in reproductive tract [Recovered/Resolved]
  - Complication of device removal [Recovered/Resolved]
  - Embedded device [Recovered/Resolved]
  - Inflammation [Recovered/Resolved]
  - Emotional distress [Unknown]
  - Infection [Recovered/Resolved]
  - Muscle spasms [Unknown]
  - Device expulsion [Recovered/Resolved]
  - Heavy menstrual bleeding [Unknown]
  - Vaginal discharge [Unknown]
  - Vaginal infection [Unknown]
  - Back pain [Recovering/Resolving]
  - Menstruation irregular [Recovered/Resolved]
  - Pelvic pain [Recovered/Resolved]

NARRATIVE: CASE EVENT DATE: 20130101
